FAERS Safety Report 7860036-5 (Version None)
Quarter: 2011Q4

REPORT INFORMATION
  Report Type: 
  Country: None (occurrence: None)
  Receive Date: 20111025
  Receipt Date: 20111019
  Transmission Date: 20120403
  Serious: Yes (Hospitalization)
  Sender: FDA-Public Use
  Company Number: AUR-APL-2011-05522

PATIENT
  Age: 75 Year
  Sex: Female
  Weight: 96 kg

DRUGS (12)
  1. MOVICOL (NULYTELY   /01053601/) [Concomitant]
  2. AMOXICILLIN [Suspect]
     Indication: LOWER RESPIRATORY TRACT INFECTION
     Dosage: 750 MG (250 MG, 3 IN 1 D), ORAL
     Route: 048
     Dates: start: 20110930, end: 20111002
  3. IRBESARTAN [Suspect]
     Indication: HYPERTENSION
     Dosage: 150 MG (150 MG, 1 IN 1 D), ORAL
     Route: 048
     Dates: start: 20100513, end: 20111002
  4. COSOPT (COSOPT) [Concomitant]
  5. LATANOPROST [Concomitant]
  6. CHLORPHENIRAMINE TAB [Concomitant]
  7. BENDROFLUMETHIAZIDE (BENDROFLUMETHIAZIDE) [Concomitant]
  8. CITALOPRAM HYDROBROMIDE [Concomitant]
  9. RISPERIDONE [Suspect]
     Indication: AGITATION
     Dosage: 2 MG (1 MG, 2 IN 1 D), ORAL
     Route: 048
     Dates: start: 20110929, end: 20111002
  10. TRAMACET (ULTRACET) [Concomitant]
  11. CLOPIDOGREL [Concomitant]
  12. LORATADINE [Concomitant]

REACTIONS (3)
  - LOWER RESPIRATORY TRACT INFECTION [None]
  - ANGIOEDEMA [None]
  - AGITATION [None]
